FAERS Safety Report 14027759 (Version 9)
Quarter: 2019Q4

REPORT INFORMATION
  Report Type: Spontaneous
  Country: KR (occurrence: KR)
  Receive Date: 20170929
  Receipt Date: 20191216
  Transmission Date: 20200122
  Serious: Yes (Hospitalization, Other)
  Sender: FDA-Public Use
  Company Number: KR-009507513-1709KOR013063

PATIENT
  Age: 72 Year
  Sex: Female
  Weight: 49.1 kg

DRUGS (9)
  1. BEECOM [Concomitant]
     Indication: NUTRITIONAL SUPPLEMENTATION
     Dosage: 1 TABLET, QD
     Route: 048
     Dates: start: 20170808, end: 20170826
  2. NOXAFIL [Suspect]
     Active Substance: POSACONAZOLE
     Indication: ANTIFUNGAL PROPHYLAXIS
     Dosage: 300 MG, TWICE DAILY
     Route: 048
     Dates: start: 20170808, end: 20170808
  3. NOXAFIL [Suspect]
     Active Substance: POSACONAZOLE
     Dosage: 300 MG, ONCE A DAY
     Route: 048
     Dates: start: 20170809, end: 20170812
  4. SMECTA [Concomitant]
     Active Substance: MONTMORILLONITE
     Indication: DIARRHOEA
  5. SMECTA [Concomitant]
     Active Substance: MONTMORILLONITE
     Indication: GASTROENTERITIS
     Dosage: 20 ML, TID
     Route: 048
     Dates: start: 20170804, end: 20170826
  6. MEDILAC-DS [Concomitant]
     Indication: DIARRHOEA
  7. NOXAFIL [Suspect]
     Active Substance: POSACONAZOLE
     Dosage: 300 MG, ONCE A DAY
     Route: 048
     Dates: start: 20170830, end: 20171002
  8. MEDILAC-DS [Concomitant]
     Indication: GASTROENTERITIS
     Dosage: 1 CAPSULE, BID
     Route: 048
     Dates: start: 20170807, end: 20170826
  9. DACOGEN [Concomitant]
     Active Substance: DECITABINE
     Indication: ACUTE MYELOID LEUKAEMIA
     Dosage: 30 MG, QD
     Route: 042
     Dates: start: 20170808, end: 20170812

REACTIONS (9)
  - Asthenia [Recovered/Resolved]
  - Pulmonary embolism [Recovering/Resolving]
  - Febrile neutropenia [Recovered/Resolved]
  - Stomatitis [Recovered/Resolved]
  - Decreased appetite [Recovering/Resolving]
  - Pancytopenia [Recovered/Resolved]
  - Neutropenia [Recovered/Resolved]
  - Pneumonia [Recovered/Resolved]
  - Hypotension [Recovered/Resolved]

NARRATIVE: CASE EVENT DATE: 20170808
